FAERS Safety Report 5384456-6 (Version None)
Quarter: 2007Q3

REPORT INFORMATION
  Report Type: 
  Country: None (occurrence: None)
  Receive Date: 20070711
  Receipt Date: 20070102
  Transmission Date: 20080115
  Serious: No
  Sender: FDA-Public Use
  Company Number: US-AMGEN-KDL205515

PATIENT
  Sex: Male

DRUGS (3)
  1. KINERET [Suspect]
     Route: 058
     Dates: start: 20060322, end: 20060601
  2. ARAVA [Concomitant]
     Dates: start: 20030101
  3. SULFASALAZINE [Concomitant]
     Dates: start: 20040101

REACTIONS (2)
  - LUNG DISORDER [None]
  - LUNG NEOPLASM [None]
